FAERS Safety Report 4582314-8 (Version None)
Quarter: 2005Q1

REPORT INFORMATION
  Report Type: 
  Country: None (occurrence: None)
  Receive Date: 20050215
  Receipt Date: 20050113
  Transmission Date: 20050727
  Serious: Yes (Hospitalization)
  Sender: FDA-Public Use
  Company Number: SE-NOVOPROD-241647

PATIENT
  Age: 55 Year
  Sex: Female

DRUGS (1)
  1. VAGIFEM [Suspect]
     Indication: HORMONE REPLACEMENT THERAPY
     Dates: start: 20040610, end: 20040901

REACTIONS (1)
  - ENDOMETRIAL HYPERPLASIA [None]
